FAERS Safety Report 12894382 (Version 3)
Quarter: 2017Q2

REPORT INFORMATION
  Report Type: Report from Study
  Country: None (occurrence: BR)
  Receive Date: 20161028
  Receipt Date: 20170507
  Transmission Date: 20170830
  Serious: Yes (Other)
  Sender: FDA-Public Use
  Company Number: BR-ABBVIE-16K-020-1762507-00

PATIENT
  Sex: Female
  Weight: 77 kg

DRUGS (2)
  1. HUMIRA [Suspect]
     Active Substance: ADALIMUMAB
     Route: 058
  2. HUMIRA [Suspect]
     Active Substance: ADALIMUMAB
     Indication: RHEUMATOID ARTHRITIS
     Route: 058
     Dates: start: 20140601, end: 20160929

REACTIONS (7)
  - Tooth injury [Unknown]
  - Teeth brittle [Unknown]
  - Vaginal haemorrhage [Unknown]
  - Fall [Unknown]
  - Pain [Unknown]
  - Bone loss [Unknown]
  - Tooth disorder [Unknown]

NARRATIVE: CASE EVENT DATE: 2016
